FAERS Safety Report 11642743 (Version 4)
Quarter: 2015Q4

REPORT INFORMATION
  Report Type: Report from Study
  Country: AU (occurrence: AU)
  Receive Date: 20151020
  Receipt Date: 20151126
  Transmission Date: 20160304
  Serious: Yes (Other)
  Sender: FDA-Public Use
  Company Number: AU-ROCHE-1620173

PATIENT
  Sex: Female
  Weight: 88 kg

DRUGS (3)
  1. ACTEMRA [Suspect]
     Active Substance: TOCILIZUMAB
     Route: 042
     Dates: start: 20151119
  2. ACTEMRA [Suspect]
     Active Substance: TOCILIZUMAB
     Route: 042
     Dates: start: 20151020
  3. ACTEMRA [Suspect]
     Active Substance: TOCILIZUMAB
     Indication: RHEUMATOID ARTHRITIS
     Route: 042
     Dates: start: 20150318, end: 20151020

REACTIONS (7)
  - White blood cell count decreased [Unknown]
  - Localised infection [Not Recovered/Not Resolved]
  - Restless legs syndrome [Recovering/Resolving]
  - Pruritus [Not Recovered/Not Resolved]
  - Localised infection [Recovered/Resolved]
  - Neutropenia [Unknown]
  - Faeces pale [Not Recovered/Not Resolved]
